FAERS Safety Report 11426195 (Version 2)
Quarter: 2015Q3

REPORT INFORMATION
  Report Type: Spontaneous
  Country: US (occurrence: US)
  Receive Date: 20150821
  Receipt Date: 20150903
  Transmission Date: 20151125
  Serious: No
  Sender: FDA-Public Use
  Company Number: US-ELI_LILLY_AND_COMPANY-US201011004120

PATIENT
  Age: 84 Year
  Sex: Female

DRUGS (2)
  1. HUMALOG MIX75/25 [Suspect]
     Active Substance: INSULIN LISPRO
     Indication: DIABETES MELLITUS
     Dosage: 6 U, 3/D
     Dates: start: 201010, end: 20101114
  2. HUMULIN 70/30 [Suspect]
     Active Substance: INSULIN HUMAN
     Indication: DIABETES MELLITUS
     Dosage: 6 U, 3/D

REACTIONS (13)
  - Wrong drug administered [Unknown]
  - Malaise [Unknown]
  - Feeling abnormal [Not Recovered/Not Resolved]
  - Drug ineffective [Recovered/Resolved]
  - Blood pressure abnormal [Unknown]
  - Hypoacusis [Not Recovered/Not Resolved]
  - Pain [Unknown]
  - Blood glucose increased [Recovering/Resolving]
  - Blood glucose decreased [Unknown]
  - Drug dispensing error [Unknown]
  - Thinking abnormal [Unknown]
  - Expired product administered [Unknown]
  - Cystitis [Recovering/Resolving]

NARRATIVE: CASE EVENT DATE: 201010
